FAERS Safety Report 4934934-6 (Version None)
Quarter: 2006Q1

REPORT INFORMATION
  Report Type: 
  Country: None (occurrence: None)
  Receive Date: 20060303
  Receipt Date: 20060303
  Transmission Date: 20060701
  Serious: Yes (Hospitalization)
  Sender: FDA-Public Use
  Company Number: None

PATIENT
  Sex: Male

DRUGS (2)
  1. GEMCITABINE [Suspect]
     Indication: COLON CANCER
     Dosage: 1000MG/M2   DAY 1   IV
     Route: 042
     Dates: start: 20060216
  2. OXALIPLATIN [Suspect]
     Indication: COLON CANCER
     Dosage: 100MG/M2   DAY 2   IV
     Route: 042
     Dates: start: 20060217

REACTIONS (2)
  - INFUSION RELATED REACTION [None]
  - PAIN IN EXTREMITY [None]
